FAERS Safety Report 25857222 (Version 3)
Quarter: 2025Q4

REPORT INFORMATION
  Report Type: Report from Study
  Country: CH (occurrence: CH)
  Receive Date: 20250929
  Receipt Date: 20251104
  Transmission Date: 20260118
  Serious: Yes (Other)
  Sender: CSL BEHRING
  Company Number: CH-BEH-2025220012

PATIENT
  Sex: Female
  Weight: 90 kg

DRUGS (4)
  1. HIZENTRA [Suspect]
     Active Substance: HUMAN IMMUNOGLOBULIN G
     Indication: Secondary immunodeficiency
     Dosage: 8 G, QW
     Route: 058
     Dates: start: 20250918
  2. HIZENTRA [Suspect]
     Active Substance: HUMAN IMMUNOGLOBULIN G
     Dosage: 1 G
     Route: 065
  3. CLEMASTINE FUMARATE [Concomitant]
     Active Substance: CLEMASTINE FUMARATE
     Dosage: 2 MG
  4. MONTELUKAST [Concomitant]
     Active Substance: MONTELUKAST
     Dosage: 1 TABLET

REACTIONS (5)
  - Throat irritation [Recovered/Resolved]
  - Discomfort [Recovered/Resolved]
  - Hypersensitivity [Unknown]
  - Injection site pruritus [Recovering/Resolving]
  - Throat irritation [Recovering/Resolving]

NARRATIVE: CASE EVENT DATE: 20250901
